FAERS Safety Report 5295136-X (Version None)
Quarter: 2007Q1

REPORT INFORMATION
  Report Type: 
  Country: None (occurrence: None)
  Receive Date: 20070201
  Receipt Date: 20061023
  Transmission Date: 20070707
  Serious: No
  Sender: FDA-Public Use
  Company Number: 2006PV023737

PATIENT
  Age: 61 Year
  Sex: Female
  Weight: 149.687 kg

DRUGS (9)
  1. BYETTA [Suspect]
     Indication: DIABETES MELLITUS NON-INSULIN-DEPENDENT
     Dosage: SEE IMAGE
     Route: 058
     Dates: start: 20060926, end: 20061001
  2. BYETTA [Suspect]
     Indication: DIABETES MELLITUS NON-INSULIN-DEPENDENT
     Dosage: SEE IMAGE
     Route: 058
     Dates: start: 20061001
  3. NOVOLOG MIX 70/30 [Concomitant]
  4. AMARYL [Concomitant]
  5. ALBUTEROL [Concomitant]
  6. VITAMIN B COMPLEX CAP [Concomitant]
  7. POTASSIUM GLUCONATE TAB [Concomitant]
  8. VITAMIN C WITH ANTIOXIDANT, ZINC, MAGNESIUM [Concomitant]
  9. PREVACID [Concomitant]

REACTIONS (4)
  - LACRIMATION INCREASED [None]
  - MUSCLE SPASMS [None]
  - PAIN [None]
  - RHINORRHOEA [None]
